FAERS Safety Report 5210626-3 (Version None)
Quarter: 2007Q1

REPORT INFORMATION
  Report Type: 
  Country: None (occurrence: None)
  Receive Date: 20070117
  Receipt Date: 20070112
  Transmission Date: 20070707
  Serious: No
  Sender: FDA-Public Use
  Company Number: US-BAXTER-2006BH014326

PATIENT
  Age: 49 Year
  Sex: Male
  Weight: 102 kg

DRUGS (2)
  1. KIOVIG [Suspect]
     Indication: DEMYELINATING POLYNEUROPATHY
     Route: 042
     Dates: start: 20061018, end: 20061020
  2. BENADRYL [Concomitant]
     Indication: DRUG USE FOR UNKNOWN INDICATION
     Route: 048
     Dates: start: 20061019, end: 20061019

REACTIONS (7)
  - CHEST DISCOMFORT [None]
  - CHEST PAIN [None]
  - FEELING HOT [None]
  - FLANK PAIN [None]
  - HEADACHE [None]
  - PAIN IN EXTREMITY [None]
  - RASH [None]
